FAERS Safety Report 5114470-7 (Version None)
Quarter: 2006Q3

REPORT INFORMATION
  Report Type: 
  Country: None (occurrence: None)
  Receive Date: 20060802
  Receipt Date: 20050812
  Transmission Date: 20061208
  Serious: Yes (Other)
  Sender: FDA-Public Use
  Company Number: 200516243US

PATIENT
  Age: 35 Year
  Sex: Female
  Weight: 119 kg

DRUGS (6)
  1. KETEK [Suspect]
     Indication: SINUSITIS
     Dosage: 400 MG QD PO
     Route: 048
     Dates: start: 20050808, end: 20050811
  2. BUPROPION HCL [Concomitant]
  3. OXCARBAZEPINE (TRILEPTAL ^CIBA-GEIGY^) [Concomitant]
  4. PANTOPRAZOLE SODIUM [Concomitant]
  5. TRAZODONE HCL [Concomitant]
  6. VITAMINS NOS ( VITAMINS NOS ) [Concomitant]

REACTIONS (3)
  - ABDOMINAL DISTENSION [None]
  - ABDOMINAL PAIN [None]
  - FLATULENCE [None]
